FAERS Safety Report 5020676-8 (Version None)
Quarter: 2006Q2

REPORT INFORMATION
  Report Type: 
  Country: None (occurrence: None)
  Receive Date: 20060602
  Receipt Date: 20060515
  Transmission Date: 20061013
  Serious: Yes (Hospitalization)
  Sender: FDA-Public Use
  Company Number: US200605003015

PATIENT
  Sex: Female

DRUGS (4)
  1. PROZAC [Suspect]
     Indication: DEPRESSION
     Dosage: 20 MG, 4/D, ORAL
     Route: 048
     Dates: start: 19800101
  2. STRATTERA [Suspect]
     Indication: ATTENTION DEFICIT/HYPERACTIVITY DISORDER
     Dates: start: 20030401, end: 20040101
  3. NEURONTIN [Concomitant]
  4. LIBRIUM [Concomitant]

REACTIONS (13)
  - ARTHRITIS [None]
  - ASTHENIA [None]
  - BURNING SENSATION [None]
  - CARDIAC OPERATION [None]
  - DRUG INEFFECTIVE [None]
  - EMOTIONAL DISORDER [None]
  - GALLBLADDER OPERATION [None]
  - HEADACHE [None]
  - HYPERSOMNIA [None]
  - INTERVERTEBRAL DISC COMPRESSION [None]
  - ORAL INTAKE REDUCED [None]
  - PAIN [None]
  - PSYCHOMOTOR HYPERACTIVITY [None]
